FAERS Safety Report 11308310 (Version 1)
Quarter: 2015Q3

REPORT INFORMATION
  Report Type: Spontaneous
  Country: US (occurrence: US)
  Receive Date: 20150724
  Receipt Date: 20150724
  Transmission Date: 20151125
  Serious: Yes (Other)
  Sender: FDA-Public Use
  Company Number: US-TEVA-579764USA

PATIENT
  Sex: Female
  Weight: 59.02 kg

DRUGS (3)
  1. NUVIGIL [Suspect]
     Active Substance: ARMODAFINIL
     Dosage: 75 MILLIGRAM DAILY; WEEK 3
     Route: 065
     Dates: end: 201504
  2. NUVIGIL [Suspect]
     Active Substance: ARMODAFINIL
     Indication: NARCOLEPSY
     Dosage: 25 MILLIGRAM DAILY; WEEK ONE
     Route: 065
     Dates: start: 201503
  3. NUVIGIL [Suspect]
     Active Substance: ARMODAFINIL
     Dosage: 50 MILLIGRAM DAILY; WEEK TWO
     Route: 065

REACTIONS (10)
  - Depression [Recovered/Resolved]
  - Decreased appetite [Recovered/Resolved]
  - Staring [Recovered/Resolved]
  - Migraine [Recovered/Resolved]
  - Metabolic disorder [Unknown]
  - Overdose [Recovered/Resolved]
  - Seizure [Unknown]
  - Clonic convulsion [Unknown]
  - Insomnia [Unknown]
  - Memory impairment [Not Recovered/Not Resolved]

NARRATIVE: CASE EVENT DATE: 2015
